FAERS Safety Report 17529964 (Version 1)
Quarter: 2020Q1

REPORT INFORMATION
  Report Type: Spontaneous
  Country: CA (occurrence: CA)
  Receive Date: 20200312
  Receipt Date: 20200312
  Transmission Date: 20200409
  Serious: Yes (Other)
  Sender: FDA-Public Use
  Company Number: CA-PFIZER INC-2020025006

PATIENT
  Age: 60 Year
  Sex: Female

DRUGS (4)
  1. SULFASALAZINE. [Suspect]
     Active Substance: SULFASALAZINE
     Dosage: UNK
     Route: 065
  2. OXYCONTIN [Suspect]
     Active Substance: OXYCODONE HYDROCHLORIDE
     Dosage: UNK
     Route: 065
  3. MORPHINE SULFATE. [Suspect]
     Active Substance: MORPHINE SULFATE
     Dosage: UNK
     Route: 065
  4. CEPHALEXINE [Suspect]
     Active Substance: CEPHALEXIN
     Dosage: UNK
     Route: 065

REACTIONS (4)
  - Tibia fracture [Unknown]
  - Hand deformity [Unknown]
  - Osteoporosis [Unknown]
  - Drug hypersensitivity [Unknown]
